FAERS Safety Report 9603624 (Version 1)
Quarter: 2013Q4

REPORT INFORMATION
  Report Type: Spontaneous
  Country: US (occurrence: US)
  Receive Date: 20131007
  Receipt Date: 20131007
  Transmission Date: 20140711
  Serious: No
  Sender: FDA-Public Use
  Company Number: US-PFIZER INC-2013284402

PATIENT
  Age: 29 Year
  Sex: Female
  Weight: 70.3 kg

DRUGS (3)
  1. AZITHROMYCIN [Suspect]
     Indication: LYME DISEASE
     Dosage: 500MG ORAL TABLET ONCE A DAY FOR FOUR DAYS AND THREE DAYS OFF
     Route: 048
     Dates: start: 201308
  2. FLAGYL [Concomitant]
     Dosage: UNK
  3. CEFUROXIME [Concomitant]
     Dosage: UNK

REACTIONS (2)
  - Inappropriate schedule of drug administration [Unknown]
  - Alopecia [Not Recovered/Not Resolved]
